FAERS Safety Report 5110244-1 (Version None)
Quarter: 2006Q3

REPORT INFORMATION
  Report Type: 
  Country: None (occurrence: None)
  Receive Date: 20060921
  Receipt Date: 20060920
  Transmission Date: 20061208
  Serious: Yes (Other)
  Sender: FDA-Public Use
  Company Number: PR-GLAXOSMITHKLINE-A0620751A

PATIENT
  Age: 39 Year
  Sex: Female

DRUGS (2)
  1. COMBIVIR [Suspect]
     Indication: HIV INFECTION
     Dosage: 1TAB TWICE PER DAY
     Route: 048
     Dates: start: 20060120
  2. VIRACEPT [Concomitant]
     Indication: HIV INFECTION
     Dosage: 2500MG PER DAY
     Route: 048
     Dates: start: 20060120

REACTIONS (2)
  - PREMATURE SEPARATION OF PLACENTA [None]
  - STILLBIRTH [None]
